FAERS Safety Report 7074132-6 (Version None)
Quarter: 2010Q4

REPORT INFORMATION
  Report Type: 
  Country: None (occurrence: None)
  Receive Date: 20101029
  Receipt Date: 20101026
  Transmission Date: 20110411
  Serious: Yes (Other)
  Sender: FDA-Public Use
  Company Number: US-PFIZER INC-2010137057

PATIENT
  Age: 27 Year
  Sex: Male

DRUGS (1)
  1. NARDIL [Suspect]
     Dosage: 4 DF DAILY

REACTIONS (1)
  - ASTHMA [None]
